FAERS Safety Report 19678968 (Version 1)
Quarter: 2021Q3

REPORT INFORMATION
  Report Type: Spontaneous
  Country: US (occurrence: US)
  Receive Date: 20210809
  Receipt Date: 20210809
  Transmission Date: 20211014
  Serious: No
  Sender: FDA-Public Use
  Company Number: US-ABBVIE-21K-163-3814980-00

PATIENT
  Sex: Male

DRUGS (1)
  1. DEPAKOTE ER [Suspect]
     Active Substance: DIVALPROEX SODIUM
     Indication: INTERMITTENT EXPLOSIVE DISORDER
     Route: 048

REACTIONS (4)
  - Off label use [Not Recovered/Not Resolved]
  - Rash [Unknown]
  - Diarrhoea [Unknown]
  - Dizziness [Unknown]
